FAERS Safety Report 8138392-2 (Version None)
Quarter: 2012Q1

REPORT INFORMATION
  Report Type: 
  Country: None (occurrence: None)
  Receive Date: 20120215
  Receipt Date: 20120203
  Transmission Date: 20120608
  Serious: Yes (Other)
  Sender: FDA-Public Use
  Company Number: US-SANOFI-AVENTIS-2012SA008295

PATIENT
  Age: 69 Year
  Sex: Male

DRUGS (3)
  1. LANTUS [Concomitant]
     Dosage: 10-12UNITS
     Route: 058
     Dates: start: 20070101
  2. OPTICLICK [Concomitant]
  3. GLYBURIDE [Suspect]
     Route: 065

REACTIONS (1)
  - HYPOGLYCAEMIA [None]
